FAERS Safety Report 5150638-1 (Version None)
Quarter: 2006Q4

REPORT INFORMATION
  Report Type: 
  Country: None (occurrence: None)
  Receive Date: 20061114
  Receipt Date: 20061109
  Transmission Date: 20070319
  Serious: Yes (Hospitalization, Other)
  Sender: FDA-Public Use
  Company Number: US-AVENTIS-200619196US

PATIENT
  Sex: Female

DRUGS (1)
  1. KETEK [Suspect]
     Indication: OTITIS MEDIA
     Route: 048
     Dates: start: 20061013, end: 20061018

REACTIONS (7)
  - ABDOMINAL PAIN UPPER [None]
  - ALANINE AMINOTRANSFERASE INCREASED [None]
  - ASPARTATE AMINOTRANSFERASE INCREASED [None]
  - HEPATITIS [None]
  - MALAISE [None]
  - NAUSEA [None]
  - WHITE BLOOD CELL COUNT INCREASED [None]
